FAERS Safety Report 14072871 (Version 2)
Quarter: 2018Q3

REPORT INFORMATION
  Report Type: Spontaneous
  Country: US (occurrence: US)
  Receive Date: 20171011
  Receipt Date: 20180713
  Transmission Date: 20181010
  Serious: Yes (Other)
  Sender: FDA-Public Use
  Company Number: US-ASTRAZENECA-2017SF01619

PATIENT
  Age: 19397 Day
  Sex: Male
  Weight: 97.5 kg

DRUGS (31)
  1. NEXIUM [Suspect]
     Active Substance: ESOMEPRAZOLE MAGNESIUM
     Indication: GASTROOESOPHAGEAL REFLUX DISEASE
     Dosage: PFS
     Route: 048
     Dates: start: 2014, end: 2017
  2. PRILOSEC OTC [Suspect]
     Active Substance: OMEPRAZOLE MAGNESIUM
     Indication: GASTROOESOPHAGEAL REFLUX DISEASE
     Dosage: MR
     Route: 048
     Dates: start: 20140925
  3. ENALAPRIL MALEATE. [Concomitant]
     Active Substance: ENALAPRIL MALEATE
     Indication: BLOOD PRESSURE ABNORMAL
     Dates: start: 2011
  4. HYDROCHLOROTHIAZIDE. [Concomitant]
     Active Substance: HYDROCHLOROTHIAZIDE
     Dates: start: 2015, end: 2016
  5. NEXIUM [Suspect]
     Active Substance: ESOMEPRAZOLE MAGNESIUM
     Indication: GASTROOESOPHAGEAL REFLUX DISEASE
     Route: 048
     Dates: start: 2014
  6. ATORVASTATIN [Concomitant]
     Active Substance: ATORVASTATIN
     Indication: BLOOD CHOLESTEROL ABNORMAL
     Dates: start: 2011
  7. TRAMADOL HYDROCHLORIDE. [Concomitant]
     Active Substance: TRAMADOL HYDROCHLORIDE
     Indication: BACK PAIN
     Dates: start: 20170507
  8. MELOXICAM. [Concomitant]
     Active Substance: MELOXICAM
     Indication: ARTHRALGIA
     Dates: start: 20180405
  9. LOSARTAN. [Concomitant]
     Active Substance: LOSARTAN
     Dates: start: 2015, end: 2016
  10. METOPROLOL. [Concomitant]
     Active Substance: METOPROLOL
     Dates: start: 2015, end: 2016
  11. AZELASTINE. [Concomitant]
     Active Substance: AZELASTINE HYDROCHLORIDE
     Indication: MULTIPLE ALLERGIES
     Dates: start: 2011
  12. EXEDRIN [Concomitant]
     Indication: PAIN
     Dates: start: 2014, end: 2018
  13. NEXIUM [Suspect]
     Active Substance: ESOMEPRAZOLE MAGNESIUM
     Indication: GASTROOESOPHAGEAL REFLUX DISEASE
     Route: 048
     Dates: start: 2014
  14. NEXIUM [Suspect]
     Active Substance: ESOMEPRAZOLE MAGNESIUM
     Indication: GASTROOESOPHAGEAL REFLUX DISEASE
     Dosage: PFS
     Route: 048
     Dates: start: 2014, end: 2017
  15. PRILOSEC OTC [Suspect]
     Active Substance: OMEPRAZOLE MAGNESIUM
     Indication: GASTROOESOPHAGEAL REFLUX DISEASE
     Route: 048
     Dates: start: 2017
  16. FLUTICASONE PROPIONATE. [Concomitant]
     Active Substance: FLUTICASONE PROPIONATE
     Indication: MULTIPLE ALLERGIES
     Dates: start: 2004
  17. ASPIRIN. [Concomitant]
     Active Substance: ASPIRIN
     Dates: start: 2015, end: 2016
  18. METOPROLOL SUCCINATE. [Concomitant]
     Active Substance: METOPROLOL SUCCINATE
     Indication: BLOOD PRESSURE ABNORMAL
     Dates: start: 2011
  19. AMLODIPINE BESYLATE. [Concomitant]
     Active Substance: AMLODIPINE BESYLATE
     Indication: BLOOD PRESSURE ABNORMAL
     Dates: start: 201708
  20. HYDRALAZINE [Concomitant]
     Active Substance: HYDRALAZINE HYDROCHLORIDE
     Indication: BLOOD PRESSURE ABNORMAL
     Dates: start: 201109
  21. FINASTERIDE. [Concomitant]
     Active Substance: FINASTERIDE
     Dates: start: 2015, end: 2016
  22. NEXIUM [Suspect]
     Active Substance: ESOMEPRAZOLE MAGNESIUM
     Indication: GASTROOESOPHAGEAL REFLUX DISEASE
     Dosage: MR
     Route: 048
     Dates: start: 20140925
  23. TAMSULOSIN HYDROCHLORIDE. [Concomitant]
     Active Substance: TAMSULOSIN HYDROCHLORIDE
     Indication: DYSURIA
     Dates: start: 20170902
  24. PEPTO?BISMOL [Concomitant]
     Active Substance: BISMUTH SUBSALICYLATE
     Dates: start: 2015, end: 2016
  25. ASTRIN [Concomitant]
     Indication: CARDIAC DISORDER
     Dates: start: 2004
  26. PEPCID COMPLETE OTC [Concomitant]
     Dates: start: 2011, end: 2014
  27. ZANTAC [Concomitant]
     Active Substance: RANITIDINE HYDROCHLORIDE
     Dates: start: 2014, end: 2016
  28. ROLAIDS [Concomitant]
     Active Substance: CALCIUM CARBONATE\MAGNESIUM HYDROXIDE
     Dates: start: 2015, end: 2016
  29. NEXIUM [Suspect]
     Active Substance: ESOMEPRAZOLE MAGNESIUM
     Indication: GASTROOESOPHAGEAL REFLUX DISEASE
     Dosage: MR
     Route: 048
     Dates: start: 20140925
  30. ADVIL [Concomitant]
     Active Substance: IBUPROFEN
     Indication: PAIN
     Dates: start: 2014, end: 2018
  31. TUMS [Concomitant]
     Active Substance: CALCIUM CARBONATE
     Dates: start: 2015, end: 2016

REACTIONS (3)
  - Renal failure [Not Recovered/Not Resolved]
  - Acute kidney injury [Unknown]
  - Chronic kidney disease [Not Recovered/Not Resolved]

NARRATIVE: CASE EVENT DATE: 20150316
